FAERS Safety Report 4514757-2 (Version None)
Quarter: 2004Q4

REPORT INFORMATION
  Report Type: 
  Country: None (occurrence: None)
  Receive Date: 20041201
  Receipt Date: 20041119
  Transmission Date: 20050328
  Serious: Yes (Hospitalization)
  Sender: FDA-Public Use
  Company Number: US-JNJFOC-20041105723

PATIENT
  Sex: Male

DRUGS (12)
  1. INFLIXIMAB [Suspect]
     Indication: RHEUMATOID ARTHRITIS
     Route: 042
  2. CELEBREX [Concomitant]
  3. CELEXA [Concomitant]
  4. COZAAR [Concomitant]
  5. FOLIC ACID [Concomitant]
  6. GLYBURIDE [Concomitant]
  7. NORVASC [Concomitant]
  8. NYSTATIN [Concomitant]
  9. PREDNISONE [Concomitant]
  10. PREVACID [Concomitant]
  11. TOPROL-XL [Concomitant]
  12. METHOTREXATE [Concomitant]

REACTIONS (4)
  - HYPERTENSIVE CRISIS [None]
  - LACUNAR INFARCTION [None]
  - RENAL ARTERY STENOSIS [None]
  - TRANSIENT ISCHAEMIC ATTACK [None]
